FAERS Safety Report 5215031-1 (Version None)
Quarter: 2007Q1

REPORT INFORMATION
  Report Type: 
  Country: None (occurrence: None)
  Receive Date: 20070122
  Receipt Date: 20070115
  Transmission Date: 20070707
  Serious: Yes (Other)
  Sender: FDA-Public Use
  Company Number: JP-PFIZER INC-2006147219

PATIENT
  Age: 60 Year
  Sex: Female

DRUGS (3)
  1. EPIRUBICIN HYDROCHLORIDE SOLUTION, STERILE [Suspect]
     Indication: BREAST CANCER
     Dosage: DAILY DOSE:100MG/M*2
     Route: 042
  2. FLUOROURACIL [Suspect]
     Indication: BREAST CANCER
     Dosage: DAILY DOSE:500MG/M*2
     Route: 042
     Dates: start: 20061121, end: 20061121
  3. ENDOXAN [Concomitant]
     Indication: BREAST CANCER
     Dosage: DAILY DOSE:500MG/M*2
     Route: 042
     Dates: start: 20061121

REACTIONS (1)
  - PANCREATITIS ACUTE [None]
